FAERS Safety Report 13951906 (Version 1)
Quarter: 2017Q3

REPORT INFORMATION
  Report Type: Spontaneous
  Country: FR (occurrence: FR)
  Receive Date: 20170910
  Receipt Date: 20170910
  Transmission Date: 20171128
  Serious: Yes (Hospitalization)
  Sender: FDA-Public Use
  Company Number: PHHY2017FR128087

PATIENT
  Age: 64 Year
  Sex: Male
  Weight: 52 kg

DRUGS (2)
  1. RIAMET [Suspect]
     Active Substance: ARTEMETHER\LUMEFANTRINE
     Indication: MALARIA
     Dosage: 4 DF, BID
     Route: 048
     Dates: start: 20170720, end: 20170722
  2. MALACEF [Suspect]
     Active Substance: ARTESUNATE
     Indication: MALARIA
     Dosage: 2.4 MG/KG, UNK (HE RECEIVED ARTESUNATE 150 MG AT HOUR 0, AT HOUR 12 AND AT HOUR 24)
     Route: 042
     Dates: start: 20170718, end: 20170719

REACTIONS (2)
  - Cholestasis [Recovered/Resolved]
  - Haemolytic anaemia [Not Recovered/Not Resolved]

NARRATIVE: CASE EVENT DATE: 20170720
